FAERS Safety Report 4941356-0 (Version None)
Quarter: 2006Q1

REPORT INFORMATION
  Report Type: 
  Country: None (occurrence: None)
  Receive Date: 20060310
  Receipt Date: 20060310
  Transmission Date: 20060701
  Serious: Yes (Other)
  Sender: FDA-Public Use
  Company Number: None

PATIENT
  Age: 65 Year
  Sex: Female
  Weight: 83.9154 kg

DRUGS (2)
  1. OXYCODONE-EXTENDED RELEASE [Suspect]
     Indication: BACK PAIN
     Dosage: 80 MG TID PO
     Route: 048
     Dates: start: 20051201
  2. OXYCODONE-EXTENDED RELEASE [Suspect]
     Indication: NECK PAIN
     Dosage: 80 MG TID PO
     Route: 048
     Dates: start: 20051201

REACTIONS (4)
  - ABDOMINAL DISCOMFORT [None]
  - NAUSEA [None]
  - PHARMACEUTICAL PRODUCT COMPLAINT [None]
  - VOMITING [None]
